FAERS Safety Report 8538963-5 (Version None)
Quarter: 2012Q2

REPORT INFORMATION
  Report Type: 
  Country: None (occurrence: None)
  Receive Date: 20120416
  Receipt Date: 20090331
  Transmission Date: 20120825
  Serious: Yes (Other)
  Sender: FDA-Public Use
  Company Number: PHEH2009US03228

PATIENT
  Age: 66 Year
  Sex: Female

DRUGS (2)
  1. DIOVAN [Suspect]
     Dosage: 80 MG, QD, ORAL, 80 MG, QD, ORAL
     Route: 048
     Dates: start: 20080101
  2. DIOVAN [Suspect]
     Dosage: 80 MG, QD, ORAL, 80 MG, QD, ORAL
     Route: 048
     Dates: end: 20090325

REACTIONS (3)
  - SWOLLEN TONGUE [None]
  - ANGIOEDEMA [None]
  - EYE SWELLING [None]
